FAERS Safety Report 9050196 (Version 1)
Quarter: 2013Q1

REPORT INFORMATION
  Report Type: Spontaneous
  Country: US (occurrence: US)
  Receive Date: 20130204
  Receipt Date: 20130204
  Transmission Date: 20140127
  Serious: No
  Sender: FDA-Public Use
  Company Number: US-AMGEN-USASP2013006781

PATIENT
  Age: 53 Year
  Sex: Female

DRUGS (1)
  1. ENBREL [Suspect]
     Indication: ANKYLOSING SPONDYLITIS
     Dosage: 50 MG, QWK
     Dates: start: 20121024

REACTIONS (8)
  - Incorrect dose administered [Not Recovered/Not Resolved]
  - Headache [Not Recovered/Not Resolved]
  - Injection site extravasation [Not Recovered/Not Resolved]
  - Sinusitis [Not Recovered/Not Resolved]
  - Injection site pain [Not Recovered/Not Resolved]
  - Pneumonia [Not Recovered/Not Resolved]
  - Injection site bruising [Not Recovered/Not Resolved]
  - Injection site haemorrhage [Not Recovered/Not Resolved]
